FAERS Safety Report 23657857 (Version 1)
Quarter: 2024Q1

REPORT INFORMATION
  Report Type: Spontaneous
  Country: US (occurrence: None)
  Receive Date: 20240320
  Receipt Date: 20240320
  Transmission Date: 20240410
  Serious: Yes (Death, Hospitalization)
  Sender: FDA-Public Use
  Company Number: None

PATIENT
  Age: 72 Year
  Sex: Male
  Weight: 93.1 kg

DRUGS (8)
  1. PEMBROLIZUMAB [Suspect]
     Active Substance: PEMBROLIZUMAB
     Indication: Prostate cancer
     Dosage: OTHER FREQUENCY : EVERY 3 WEEKS;?
     Route: 042
     Dates: start: 20230520, end: 20230705
  2. ALBUTEROL [Concomitant]
     Active Substance: ALBUTEROL
  3. ELIQUIS [Concomitant]
     Active Substance: APIXABAN
  4. LUPRON DEPOT [Concomitant]
     Active Substance: LEUPROLIDE ACETATE
  5. OMEPRAZOLE [Concomitant]
     Active Substance: OMEPRAZOLE
  6. ZYRTEC [Concomitant]
     Active Substance: CETIRIZINE HYDROCHLORIDE
  7. TRIAMCINOLONE [Concomitant]
     Active Substance: TRIAMCINOLONE
  8. NITROFURANTOIN [Concomitant]
     Active Substance: NITROFURANTOIN

REACTIONS (5)
  - Pneumonitis [None]
  - Condition aggravated [None]
  - Ischaemic stroke [None]
  - Hypoperfusion [None]
  - Oxygen saturation decreased [None]

NARRATIVE: CASE EVENT DATE: 20230715
